FAERS Safety Report 6688914-3 (Version None)
Quarter: 2010Q2

REPORT INFORMATION
  Report Type: 
  Country: None (occurrence: None)
  Receive Date: 20100420
  Receipt Date: 20100406
  Transmission Date: 20101027
  Serious: Yes (Other)
  Sender: FDA-Public Use
  Company Number: US-ELI_LILLY_AND_COMPANY-US201004003453

PATIENT
  Sex: Female

DRUGS (11)
  1. EVISTA [Suspect]
     Dosage: 60 MG, DAILY (1/D)
     Dates: start: 20080101
  2. FISH OIL [Concomitant]
  3. FLAXSEED OIL [Concomitant]
  4. POTASSIUM CHLORIDE [Concomitant]
     Dosage: 10 MEQ, 2/D
  5. AMITRIPTYLINE [Concomitant]
     Dosage: 25 MG, EACH EVENING
  6. PRESERVISION LUTEIN EYE VITA.+MIN.SUP.SOFTG. [Concomitant]
     Dosage: UNK, DAILY (1/D)
  7. LUTEIN [Concomitant]
     Dosage: 6 MG, 2/D
  8. MULTI-VITAMIN [Concomitant]
     Dosage: UNK, DAILY (1/D)
  9. ASPIRIN [Concomitant]
     Dosage: 81 MG, DAILY (1/D)
  10. GLUCOSAMINE [Concomitant]
     Dosage: UNK, 2/D
  11. VITAMIN D [Concomitant]
     Dosage: 1000 IU, 2/D

REACTIONS (2)
  - BREAST CANCER [None]
  - BREAST CANCER IN SITU [None]
